FAERS Safety Report 18799271 (Version 4)
Quarter: 2023Q2

REPORT INFORMATION
  Report Type: Spontaneous
  Country: US (occurrence: US)
  Receive Date: 20210128
  Receipt Date: 20230512
  Transmission Date: 20230721
  Serious: Yes (Other)
  Sender: FDA-Public Use
  Company Number: US-GILEAD-2021-0513354

PATIENT
  Sex: Male
  Weight: 119.73 kg

DRUGS (46)
  1. VIREAD [Suspect]
     Active Substance: TENOFOVIR DISOPROXIL FUMARATE
     Indication: HIV infection
     Dosage: UNK
     Route: 048
     Dates: start: 2005
  2. VIREAD [Suspect]
     Active Substance: TENOFOVIR DISOPROXIL FUMARATE
     Dosage: UNK
     Route: 048
     Dates: start: 2006, end: 2012
  3. VIREAD [Suspect]
     Active Substance: TENOFOVIR DISOPROXIL FUMARATE
     Dosage: UNK
     Route: 048
     Dates: start: 200401, end: 200503
  4. TRUVADA [Suspect]
     Active Substance: EMTRICITABINE\TENOFOVIR DISOPROXIL FUMARATE
     Indication: HIV infection
     Dosage: UNK
     Route: 048
     Dates: start: 200503, end: 201803
  5. BIKTARVY [Concomitant]
     Active Substance: BICTEGRAVIR SODIUM\EMTRICITABINE\TENOFOVIR ALAFENAMIDE FUMARATE
  6. EPIVIR [Concomitant]
     Active Substance: LAMIVUDINE
  7. KALETRA [Concomitant]
     Active Substance: LOPINAVIR\RITONAVIR
  8. NORVIR [Concomitant]
     Active Substance: RITONAVIR
  9. PREZCOBIX [Concomitant]
     Active Substance: COBICISTAT\DARUNAVIR ETHANOLATE
  10. PREZISTA [Concomitant]
     Active Substance: DARUNAVIR ETHANOLATE
  11. SUSTIVA [Concomitant]
     Active Substance: EFAVIRENZ
  12. TIVICAY [Concomitant]
     Active Substance: DOLUTEGRAVIR SODIUM
  13. TRIUMEQ [Concomitant]
     Active Substance: ABACAVIR SULFATE\DOLUTEGRAVIR SODIUM\LAMIVUDINE
  14. VIDEX [Concomitant]
     Active Substance: DIDANOSINE
  15. ZERIT [Concomitant]
     Active Substance: STAVUDINE
  16. SEVELAMER [Concomitant]
     Active Substance: SEVELAMER
  17. CALCITRIOL [Concomitant]
     Active Substance: CALCITRIOL
  18. SODIUM BICARBONATE [Concomitant]
     Active Substance: SODIUM BICARBONATE
  19. VITAMIN D3 [Concomitant]
     Active Substance: CHOLECALCIFEROL
  20. ALENDRONATE [Concomitant]
     Active Substance: ALENDRONATE SODIUM
  21. DICLOFENAC [Concomitant]
     Active Substance: DICLOFENAC
  22. GABAPENTIN [Concomitant]
     Active Substance: GABAPENTIN
  23. CALCIUM [Concomitant]
     Active Substance: CALCIUM
  24. LISINOPRIL [Concomitant]
     Active Substance: LISINOPRIL
  25. CYMBALTA [Concomitant]
     Active Substance: DULOXETINE HYDROCHLORIDE
  26. VALACYCLOVIR [Concomitant]
     Active Substance: VALACYCLOVIR HYDROCHLORIDE
  27. DOXEPIN [Concomitant]
     Active Substance: DOXEPIN
  28. CRESTOR [Concomitant]
     Active Substance: ROSUVASTATIN CALCIUM
  29. ACYCLOVIR [Concomitant]
     Active Substance: ACYCLOVIR
  30. SEROQUEL [Concomitant]
     Active Substance: QUETIAPINE FUMARATE
  31. VICODIN [Concomitant]
     Active Substance: ACETAMINOPHEN\HYDROCODONE BITARTRATE
  32. CANNABIS SATIVA SUBSP. INDICA TOP [Concomitant]
     Active Substance: CANNABIS SATIVA SUBSP. INDICA TOP
  33. MAXZIDE [Concomitant]
     Active Substance: HYDROCHLOROTHIAZIDE\TRIAMTERENE
  34. PRAVACHOL [Concomitant]
     Active Substance: PRAVASTATIN SODIUM
  35. THIAMINE [Concomitant]
     Active Substance: THIAMINE
  36. ADENOSINE [Concomitant]
     Active Substance: ADENOSINE
  37. TAMSULOSIN HYDROCHLORIDE [Concomitant]
     Active Substance: TAMSULOSIN HYDROCHLORIDE
  38. CARVEDILOL [Concomitant]
     Active Substance: CARVEDILOL
  39. CHANTIX [Concomitant]
     Active Substance: VARENICLINE TARTRATE
  40. ROSUVASTATIN [Concomitant]
     Active Substance: ROSUVASTATIN
  41. AMLODIPINE [Concomitant]
     Active Substance: AMLODIPINE BESYLATE
  42. EFFEXOR [Concomitant]
     Active Substance: VENLAFAXINE HYDROCHLORIDE
  43. ASPIRIN [Concomitant]
     Active Substance: ASPIRIN
  44. RISPERIDONE [Concomitant]
     Active Substance: RISPERIDONE
  45. VALTREX [Concomitant]
     Active Substance: VALACYCLOVIR HYDROCHLORIDE
  46. BONIVA [Concomitant]
     Active Substance: IBANDRONATE SODIUM

REACTIONS (15)
  - Foot fracture [Recovered/Resolved]
  - Osteoporosis [Not Recovered/Not Resolved]
  - Chronic kidney disease [Not Recovered/Not Resolved]
  - Foot fracture [Recovered/Resolved]
  - Jaw fracture [Not Recovered/Not Resolved]
  - Osteonecrosis [Not Recovered/Not Resolved]
  - Nephropathy [Not Recovered/Not Resolved]
  - Emotional distress [Not Recovered/Not Resolved]
  - Anhedonia [Not Recovered/Not Resolved]
  - Anxiety [Not Recovered/Not Resolved]
  - Pain [Not Recovered/Not Resolved]
  - Bone demineralisation [Not Recovered/Not Resolved]
  - Osteopenia [Not Recovered/Not Resolved]
  - Depression [Not Recovered/Not Resolved]
  - Blood creatinine increased [Not Recovered/Not Resolved]

NARRATIVE: CASE EVENT DATE: 20100101
